FAERS Safety Report 25249855 (Version 1)
Quarter: 2025Q2

REPORT INFORMATION
  Report Type: Spontaneous
  Country: AU (occurrence: AU)
  Receive Date: 20250429
  Receipt Date: 20250429
  Transmission Date: 20250716
  Serious: Yes (Other)
  Sender: GE HEALTHCARE
  Company Number: AU-GE HEALTHCARE-2025CSU004477

PATIENT
  Age: 67 Year
  Sex: Male
  Weight: 90 kg

DRUGS (1)
  1. OMNIPAQUE [Suspect]
     Active Substance: IOHEXOL
     Indication: Diagnostic procedure
     Route: 065

REACTIONS (7)
  - Intracranial pressure increased [Recovered/Resolved]
  - Dry throat [Recovered/Resolved]
  - Nasal congestion [Recovered/Resolved]
  - Dyspnoea [Recovered/Resolved]
  - Swelling [Recovered/Resolved]
  - Erythema [Recovered/Resolved]
  - Cough [Recovered/Resolved]

NARRATIVE: CASE EVENT DATE: 20250407
